FAERS Safety Report 5525269-1 (Version None)
Quarter: 2007Q4

REPORT INFORMATION
  Report Type: 
  Country: None (occurrence: None)
  Receive Date: 20071126
  Receipt Date: 20071113
  Transmission Date: 20080405
  Serious: Yes (Death)
  Sender: FDA-Public Use
  Company Number: AU-ROCHE-523555

PATIENT
  Age: 45 Year
  Sex: Male
  Weight: 90.1 kg

DRUGS (3)
  1. PEG-INTERFERON ALFA 2A (RO 25-8310) [Suspect]
     Route: 058
     Dates: start: 20070905, end: 20071003
  2. PARACETAMOL [Concomitant]
     Dosage: ADMINISTERED AS NEEDED
     Dates: start: 20070908, end: 20071006
  3. NUROFEN [Concomitant]
     Dosage: ADMINISTERED WHEN NEEDED
     Dates: start: 20070918, end: 20071006

REACTIONS (1)
  - SUDDEN DEATH [None]
